FAERS Safety Report 9330599 (Version 1)
Quarter: 2013Q2

REPORT INFORMATION
  Report Type: Spontaneous
  Country: US (occurrence: None)
  Receive Date: 20130604
  Receipt Date: 20130604
  Transmission Date: 20140414
  Serious: Yes (Life-Threatening, Other)
  Sender: FDA-Public Use
  Company Number: None

PATIENT
  Age: 81 Year
  Sex: Female
  Weight: 49.9 kg

DRUGS (1)
  1. TAMIFLU [Suspect]
     Indication: INFLUENZA
     Route: 048
     Dates: start: 20121127, end: 20121201

REACTIONS (11)
  - Sleep disorder [None]
  - Impaired work ability [None]
  - Impaired driving ability [None]
  - Disturbance in attention [None]
  - Paranoia [None]
  - Gait disturbance [None]
  - Speech disorder [None]
  - Drug level decreased [None]
  - Activities of daily living impaired [None]
  - Suicidal ideation [None]
  - Abnormal behaviour [None]
